FAERS Safety Report 10748329 (Version 1)
Quarter: 2015Q1

REPORT INFORMATION
  Report Type: Spontaneous
  Country: GR (occurrence: GR)
  Receive Date: 20150129
  Receipt Date: 20150129
  Transmission Date: 20150721
  Serious: Yes (Other)
  Sender: FDA-Public Use
  Company Number: GR-UCBSA-2015001672

PATIENT
  Age: 75 Year
  Sex: Female

DRUGS (1)
  1. VIMPAT [Suspect]
     Active Substance: LACOSAMIDE
     Indication: EPILEPSY
     Dosage: 200 MG/TAB DAILY
     Dates: start: 2014

REACTIONS (2)
  - Tinnitus [Unknown]
  - Deafness [Unknown]
